FAERS Safety Report 5698137-2 (Version None)
Quarter: 2008Q2

REPORT INFORMATION
  Report Type: 
  Country: None (occurrence: None)
  Receive Date: 20080408
  Receipt Date: 20071214
  Transmission Date: 20081010
  Serious: Yes (Death, Other)
  Sender: FDA-Public Use
  Company Number: DE-PFIZER INC-2007075645

PATIENT
  Sex: Female

DRUGS (3)
  1. EXUBERA [Suspect]
     Indication: DIABETES MELLITUS
     Dosage: DAILY DOSE:7MG
     Route: 048
  2. METFORMIN HCL [Concomitant]
     Route: 048
  3. GLIMIDSTADA [Concomitant]
     Route: 048

REACTIONS (2)
  - CARDIAC DEATH [None]
  - HYPOGLYCAEMIA [None]
